FAERS Safety Report 9477462 (Version 2)
Quarter: 2013Q3

REPORT INFORMATION
  Report Type: Spontaneous
  Country: AT (occurrence: AT)
  Receive Date: 20130827
  Receipt Date: 20130827
  Transmission Date: 20140515
  Serious: Yes (Death)
  Sender: FDA-Public Use
  Company Number: AT-ROCHE-1231182

PATIENT
  Age: 44 Year
  Sex: Female

DRUGS (8)
  1. HERCEPTIN [Suspect]
     Indication: BREAST CANCER METASTATIC
     Route: 065
     Dates: start: 200512, end: 200801
  2. HERCEPTIN [Suspect]
     Route: 065
     Dates: start: 200802, end: 200803
  3. HERCEPTIN [Suspect]
     Route: 065
     Dates: start: 200804, end: 201010
  4. HERCEPTIN [Suspect]
     Route: 065
     Dates: start: 201101, end: 201106
  5. HERCEPTIN [Suspect]
     Route: 065
     Dates: start: 201109, end: 201206
  6. HERCEPTIN [Suspect]
     Route: 065
     Dates: start: 20130122, end: 20130327
  7. XELODA [Suspect]
     Indication: BREAST CANCER METASTATIC
     Route: 065
     Dates: start: 200804, end: 201010
  8. PERTUZUMAB [Suspect]
     Indication: BREAST CANCER METASTATIC
     Route: 065
     Dates: start: 20130122, end: 20130327

REACTIONS (3)
  - Metastases to liver [Fatal]
  - Metastases to lymph nodes [Fatal]
  - Metastases to bone [Unknown]
